FAERS Safety Report 4514619-0 (Version None)
Quarter: 2004Q4

REPORT INFORMATION
  Report Type: 
  Country: None (occurrence: None)
  Receive Date: 20040927
  Receipt Date: 20040406
  Transmission Date: 20050328
  Serious: No
  Sender: FDA-Public Use
  Company Number: US071818

PATIENT
  Sex: Male

DRUGS (6)
  1. NEULASTA [Suspect]
     Indication: CHEMOTHERAPY
     Dosage: 6 MG, 1 IN 3 WEEKS
     Dates: start: 20040403
  2. CYCLOPHOSPHAMIDE [Concomitant]
  3. DOXORUBICIN HCL [Concomitant]
  4. VINCRISTINE SULFATE [Concomitant]
  5. PREDNISONE [Concomitant]
  6. RITUXIMAB [Concomitant]

REACTIONS (5)
  - ABDOMINAL PAIN UPPER [None]
  - ARTHRALGIA [None]
  - BONE PAIN [None]
  - MALAISE [None]
  - PAIN IN EXTREMITY [None]
